FAERS Safety Report 4720988-9 (Version None)
Quarter: 2005Q3

REPORT INFORMATION
  Report Type: 
  Country: None (occurrence: None)
  Receive Date: 20050720
  Receipt Date: 20050707
  Transmission Date: 20060218
  Serious: Yes (Other)
  Sender: FDA-Public Use
  Company Number: 2005085123

PATIENT
  Sex: Female
  Weight: 74.8435 kg

DRUGS (2)
  1. DEPO-PROVERA [Suspect]
     Indication: CONTRACEPTION
     Dosage: 150 MG (150 MG,1ST INJECTION, EVERY 10-13 WEEKS),INTRAMUSCULAR
     Route: 030
     Dates: start: 20040515, end: 20040515
  2. DEPO-PROVERA [Suspect]
     Dosage: 150 MG (150 MG,LAST INJECTION),INTRAMUSCULAR
     Route: 030
     Dates: start: 20050215, end: 20050215

REACTIONS (4)
  - MALAISE [None]
  - MIGRAINE [None]
  - MUSCLE SPASMS [None]
  - MYOCARDIAL INFARCTION [None]
